FAERS Safety Report 25875124 (Version 1)
Quarter: 2025Q4

REPORT INFORMATION
  Report Type: Spontaneous
  Country: EU (occurrence: EU)
  Receive Date: 20251003
  Receipt Date: 20251003
  Transmission Date: 20260118
  Serious: Yes (Other)
  Sender: ORGANON
  Company Number: EU-SANDOZ-SDZ2025DE069962

PATIENT
  Age: 25 Year

DRUGS (1)
  1. LOSARTAN [Suspect]
     Active Substance: LOSARTAN
     Indication: Aortic dilatation
     Dosage: UNK
     Route: 065

REACTIONS (2)
  - Periodontitis [Unknown]
  - Product use in unapproved indication [Unknown]
